FAERS Safety Report 22242702 (Version 1)
Quarter: 2023Q2

REPORT INFORMATION
  Report Type: Spontaneous
  Country: US (occurrence: US)
  Receive Date: 20230424
  Receipt Date: 20230424
  Transmission Date: 20230721
  Serious: Yes (Hospitalization)
  Sender: FDA-Public Use
  Company Number: US-MYLANLABS-2023M1042158

PATIENT
  Age: 83 Year
  Sex: Female

DRUGS (3)
  1. DEXAMETHASONE [Suspect]
     Active Substance: DEXAMETHASONE
     Indication: COVID-19
     Dosage: 6 MILLIGRAM, QD
     Route: 065
  2. VEKLURY [Suspect]
     Active Substance: REMDESIVIR
     Indication: COVID-19
     Dosage: 200 MILLIGRAM, ADMINISTERED ON DAY 1
     Route: 065
  3. VEKLURY [Suspect]
     Active Substance: REMDESIVIR
     Dosage: 100 MILLIGRAM, QD, ADMINISTERED FOR NEXT 4 DAYS
     Route: 065

REACTIONS (4)
  - Herpes simplex reactivation [Unknown]
  - Off label use [Unknown]
  - Oral candidiasis [Unknown]
  - Mouth ulceration [Unknown]
